FAERS Safety Report 4497243-8 (Version None)
Quarter: 2004Q3

REPORT INFORMATION
  Report Type: 
  Country: None (occurrence: None)
  Receive Date: 20040927
  Receipt Date: 20040720
  Transmission Date: 20050211
  Serious: No
  Sender: FDA-Public Use
  Company Number: USA040773190

PATIENT
  Age: 6 Year
  Sex: Female

DRUGS (1)
  1. STRATTERA [Suspect]
     Dosage: 10 MG DAY
     Dates: start: 20040716

REACTIONS (1)
  - DYSPHAGIA [None]
